FAERS Safety Report 12966945 (Version 1)
Quarter: 2016Q4

REPORT INFORMATION
  Report Type: Spontaneous
  Country: US (occurrence: US)
  Receive Date: 20161121
  Receipt Date: 20161121
  Transmission Date: 20170207
  Serious: No
  Sender: FDA-Public Use
  Company Number: None

PATIENT
  Age: 60 Year
  Sex: Female

DRUGS (2)
  1. CYANOCOBALMIN [Suspect]
     Active Substance: CYANOCOBALAMIN
     Indication: VITAMIN B12 DEFICIENCY
     Dosage: ?          QUANTITY:1 INJECTION(S);OTHER FREQUENCY:ONCE;?
     Dates: start: 20161109
  2. VAGINAL ESTROGEN [Concomitant]

REACTIONS (7)
  - Injection site erythema [None]
  - Abdominal pain upper [None]
  - Dizziness [None]
  - Injection site inflammation [None]
  - Palpitations [None]
  - Nausea [None]
  - Injection site pruritus [None]

NARRATIVE: CASE EVENT DATE: 20161109
